FAERS Safety Report 14387336 (Version 1)
Quarter: 2018Q1

REPORT INFORMATION
  Report Type: Spontaneous
  Country: US (occurrence: US)
  Receive Date: 20180115
  Receipt Date: 20180115
  Transmission Date: 20180509
  Serious: Yes (Hospitalization)
  Sender: FDA-Public Use
  Company Number: US-DSJP-DSU-2017-140416

PATIENT

DRUGS (1)
  1. BENICAR [Suspect]
     Active Substance: OLMESARTAN MEDOXOMIL
     Indication: PRODUCT USED FOR UNKNOWN INDICATION
     Dosage: 20 MG, BID
     Route: 048
     Dates: start: 20120809, end: 20150415

REACTIONS (5)
  - Gastrooesophageal reflux disease [Unknown]
  - Gastric polyps [Unknown]
  - Diverticulum intestinal [Unknown]
  - Sprue-like enteropathy [Recovering/Resolving]
  - Coeliac disease [Recovered/Resolved]

NARRATIVE: CASE EVENT DATE: 20120901
